FAERS Safety Report 25413371 (Version 1)
Quarter: 2025Q2

REPORT INFORMATION
  Report Type: Spontaneous
  Country: JP (occurrence: JP)
  Receive Date: 20250609
  Receipt Date: 20250609
  Transmission Date: 20250717
  Serious: Yes (Other)
  Sender: ASTELLAS
  Company Number: JP-ASTELLAS-2025-AER-030409

PATIENT
  Age: 44 Year
  Sex: Male

DRUGS (8)
  1. VYLOY [Suspect]
     Active Substance: ZOLBETUXIMAB-CLZB
     Indication: Gastric cancer stage IV
     Route: 042
     Dates: start: 20241225, end: 20241225
  2. VYLOY [Suspect]
     Active Substance: ZOLBETUXIMAB-CLZB
     Route: 042
     Dates: start: 20250115
  3. VYLOY [Suspect]
     Active Substance: ZOLBETUXIMAB-CLZB
     Route: 042
     Dates: end: 20250521
  4. XELODA [Concomitant]
     Active Substance: CAPECITABINE
     Indication: Product used for unknown indication
     Route: 048
  5. XELODA [Concomitant]
     Active Substance: CAPECITABINE
     Route: 048
     Dates: start: 20250115
  6. OXALIPLATIN [Concomitant]
     Active Substance: OXALIPLATIN
     Indication: Product used for unknown indication
     Route: 065
  7. NOVAMIN [Concomitant]
     Indication: Vomiting
     Route: 065
     Dates: start: 20250115
  8. NOVAMIN [Concomitant]
     Route: 065
     Dates: start: 20241225

REACTIONS (1)
  - Gastric cancer [Not Recovered/Not Resolved]
